FAERS Safety Report 8136255-X (Version None)
Quarter: 2012Q1

REPORT INFORMATION
  Report Type: 
  Country: None (occurrence: None)
  Receive Date: 20120214
  Receipt Date: 20120131
  Transmission Date: 20120608
  Serious: Yes (Other)
  Sender: FDA-Public Use
  Company Number: IT-SHIRE-ALL1-2012-00734

PATIENT
  Age: 40 Year
  Sex: Female

DRUGS (1)
  1. MESALAMINE [Suspect]
     Dosage: 1200 MG, 2X/DAY:BID
     Route: 048

REACTIONS (2)
  - PNEUMONITIS [None]
  - ALVEOLITIS [None]
